FAERS Safety Report 5230446-3 (Version None)
Quarter: 2007Q1

REPORT INFORMATION
  Report Type: 
  Country: None (occurrence: None)
  Receive Date: 20070206
  Receipt Date: 20070125
  Transmission Date: 20070707
  Serious: Yes (Hospitalization, Other)
  Sender: FDA-Public Use
  Company Number: US-ELI_LILLY_AND_COMPANY-US200701003399

PATIENT
  Age: 66 Year
  Sex: Female

DRUGS (19)
  1. FORTEO [Suspect]
     Indication: OSTEOPOROSIS
     Dosage: UNK, UNK
     Dates: start: 20030101
  2. LASIX [Concomitant]
  3. METFORMIN HCL [Concomitant]
  4. LEVOXYL [Concomitant]
  5. DITROPAN [Concomitant]
  6. PREVACID [Concomitant]
  7. LOPRESSOR [Concomitant]
  8. REGLAN [Concomitant]
  9. ZOLOFT [Concomitant]
  10. MACRODANTIN [Concomitant]
  11. AMITRIPTYLINE HCL [Concomitant]
  12. XANAX                                   /USA/ [Concomitant]
  13. QUININE [Concomitant]
  14. IBUPROFEN [Concomitant]
  15. ATIVAN [Concomitant]
  16. MICRO-K [Concomitant]
  17. CALCIUM W/VITAMIN D NOS [Concomitant]
  18. VITAMIN CAP [Concomitant]
  19. MAGNESIUM [Concomitant]

REACTIONS (16)
  - BENIGN LYMPH NODE NEOPLASM [None]
  - BLEPHAROSPASM [None]
  - BREAST MASS [None]
  - CONSTIPATION [None]
  - CYST [None]
  - FACIAL PALSY [None]
  - JOINT RANGE OF MOTION DECREASED [None]
  - LYMPHOEDEMA [None]
  - MOBILITY DECREASED [None]
  - MUSCLE SPASMS [None]
  - MUSCULAR WEAKNESS [None]
  - NEPHROLITHIASIS [None]
  - PANCREATIC MASS [None]
  - PARATHYROID TUMOUR [None]
  - RENAL CYST [None]
  - THYROIDECTOMY [None]
